FAERS Safety Report 4811518-1 (Version None)
Quarter: 2005Q4

REPORT INFORMATION
  Report Type: 
  Country: None (occurrence: None)
  Receive Date: 20051027
  Receipt Date: 20051017
  Transmission Date: 20060501
  Serious: Yes (Other)
  Sender: FDA-Public Use
  Company Number: GB-ABBOTT-05P-167-0314209-00

PATIENT
  Age: 38 Year
  Sex: Female
  Weight: 113 kg

DRUGS (4)
  1. REDUCTIL 15MG [Suspect]
     Indication: WEIGHT CONTROL
     Route: 048
     Dates: start: 20050905, end: 20050919
  2. REDUCTIL 15MG [Suspect]
     Route: 048
     Dates: start: 20050808, end: 20050904
  3. CILEST [Concomitant]
     Indication: MENSTRUATION IRREGULAR
     Route: 048
     Dates: start: 20031013, end: 20050915
  4. OXYTETRACYCLINE [Concomitant]
     Indication: ACNE
     Route: 048
     Dates: start: 20040315

REACTIONS (1)
  - CONTUSION [None]
